FAERS Safety Report 5372857-1 (Version None)
Quarter: 2007Q2

REPORT INFORMATION
  Report Type: 
  Country: None (occurrence: None)
  Receive Date: 20070621
  Receipt Date: 20070417
  Transmission Date: 20071010
  Serious: No
  Sender: FDA-Public Use
  Company Number: US-CVT-070088

PATIENT
  Age: 93 Year
  Sex: Male

DRUGS (8)
  1. RANEXA [Suspect]
     Indication: ANGINA PECTORIS
     Dosage: 500 MG, BID, ORAL, ORAL, ORAL
     Route: 048
     Dates: start: 20060404, end: 20060414
  2. RANEXA [Suspect]
     Indication: ANGINA PECTORIS
     Dosage: 500 MG, BID, ORAL, ORAL, ORAL
     Route: 048
     Dates: start: 20061001, end: 20061001
  3. RANEXA [Suspect]
     Indication: ANGINA PECTORIS
     Dosage: 500 MG, BID, ORAL, ORAL, ORAL
     Route: 048
     Dates: start: 20070329, end: 20070330
  4. MULTIVITAMINS(ASCORBIC ACID, ERGOCALCIFEROL, FOLIC ACID, NICOTINAMIDE, [Suspect]
  5. ISORDIL [Concomitant]
  6. PROTONIX/01263201/(PANTOPRAZOLE) [Concomitant]
  7. LASIX [Concomitant]
  8. TOPROL-XL [Concomitant]

REACTIONS (2)
  - MYOCLONUS [None]
  - TREMOR [None]
